FAERS Safety Report 15208669 (Version 1)
Quarter: 2018Q3

REPORT INFORMATION
  Report Type: Spontaneous
  Country: ES (occurrence: ES)
  Receive Date: 20180727
  Receipt Date: 20180727
  Transmission Date: 20181010
  Serious: Yes (Other)
  Sender: FDA-Public Use
  Company Number: ES-GILEAD-2018-0352106

PATIENT
  Age: 44 Year
  Sex: Male
  Weight: 72 kg

DRUGS (2)
  1. REZOLSTA [Concomitant]
     Active Substance: COBICISTAT\DARUNAVIR ETHANOLATE
     Indication: HIV TEST NEGATIVE
     Dosage: 1 COMPRIMIDO DIARIO
     Route: 048
     Dates: start: 2017
  2. EPCLUSA [Suspect]
     Active Substance: SOFOSBUVIR\VELPATASVIR
     Indication: CHRONIC HEPATITIS C
     Dosage: 1 DF, UNK
     Route: 048
     Dates: start: 20180123, end: 20180417

REACTIONS (5)
  - Intracranial pressure increased [Recovered/Resolved]
  - Photophobia [Recovered/Resolved]
  - Epistaxis [Recovered/Resolved]
  - Tension headache [Recovered/Resolved]
  - Vomiting [Recovered/Resolved]

NARRATIVE: CASE EVENT DATE: 20180123
